FAERS Safety Report 15595994 (Version 1)
Quarter: 2018Q4

REPORT INFORMATION
  Report Type: Spontaneous
  Country: FR (occurrence: FR)
  Receive Date: 20181107
  Receipt Date: 20181107
  Transmission Date: 20190205
  Serious: Yes (Other)
  Sender: FDA-Public Use
  Company Number: FR-ACCORD-091913

PATIENT
  Age: 40 Year
  Sex: Male
  Weight: 104 kg

DRUGS (14)
  1. CYTARABINE/CYTARABINE HYDROCHLORIDE/CYTARABINE OCFOSFATE [Suspect]
     Active Substance: CYTARABINE
     Indication: ACUTE LYMPHOCYTIC LEUKAEMIA
     Route: 042
     Dates: start: 20170731, end: 20171220
  2. NELARABINE [Suspect]
     Active Substance: NELARABINE
     Indication: ACUTE LYMPHOCYTIC LEUKAEMIA
     Route: 042
     Dates: start: 20171117, end: 20171218
  3. VALACICLOVIR ZELITREX [Concomitant]
     Route: 048
  4. FLUCONAZOLE TRIFLUCAN [Concomitant]
     Route: 048
  5. VINCRISTINE [Suspect]
     Active Substance: VINCRISTINE
     Indication: ACUTE LYMPHOCYTIC LEUKAEMIA
     Route: 042
     Dates: start: 20170731, end: 20171021
  6. ETOPOSIDE. [Suspect]
     Active Substance: ETOPOSIDE
     Indication: ACUTE LYMPHOCYTIC LEUKAEMIA
     Route: 042
     Dates: start: 20171117, end: 20180118
  7. METHOTREXATE. [Suspect]
     Active Substance: METHOTREXATE
     Indication: ACUTE LYMPHOCYTIC LEUKAEMIA
     Route: 042
     Dates: start: 20170731
  8. CEFUROXIME ZINNAT [Concomitant]
     Route: 048
  9. PENTAMIDINE [Concomitant]
     Active Substance: PENTAMIDINE
     Route: 065
  10. OFLOXACIN OFLOCET [Concomitant]
     Route: 048
  11. APREPITANT. [Concomitant]
     Active Substance: APREPITANT
     Route: 042
     Dates: start: 20170731, end: 20171218
  12. FILGRASTIM ZARZIO [Concomitant]
     Route: 048
  13. CYCLOPHOSPHAMIDE. [Suspect]
     Active Substance: CYCLOPHOSPHAMIDE
     Indication: ACUTE LYMPHOCYTIC LEUKAEMIA
     Route: 042
     Dates: start: 20170731, end: 20171218
  14. MERCAPTOPURINE. [Concomitant]
     Active Substance: MERCAPTOPURINE
     Route: 042
     Dates: start: 20170923, end: 20171021

REACTIONS (2)
  - Polyneuropathy [Not Recovered/Not Resolved]
  - Neuropathy peripheral [Not Recovered/Not Resolved]

NARRATIVE: CASE EVENT DATE: 20171117
